FAERS Safety Report 10501063 (Version 1)
Quarter: 2014Q4

REPORT INFORMATION
  Report Type: Spontaneous
  Country: US (occurrence: None)
  Receive Date: 20141006
  Receipt Date: 20141006
  Transmission Date: 20150528
  Serious: Yes (Hospitalization)
  Sender: FDA-Public Use
  Company Number: None

PATIENT
  Age: 93 Year
  Sex: Male
  Weight: 65.9 kg

DRUGS (1)
  1. CITALOPRAM [Suspect]
     Active Substance: CITALOPRAM HYDROBROMIDE
     Indication: HYPONATRAEMIA
     Dosage: 20 MG, EVERY DAY, PO
     Route: 048
     Dates: start: 20120604, end: 20140630

REACTIONS (2)
  - Inappropriate antidiuretic hormone secretion [None]
  - Fall [None]

NARRATIVE: CASE EVENT DATE: 20140623
